FAERS Safety Report 5926827-2 (Version None)
Quarter: 2008Q4

REPORT INFORMATION
  Report Type: 
  Country: None (occurrence: None)
  Receive Date: 20081017
  Receipt Date: 20081006
  Transmission Date: 20090506
  Serious: Yes (Hospitalization)
  Sender: FDA-Public Use
  Company Number: 2008US001008

PATIENT
  Age: 61 Year
  Sex: Female

DRUGS (2)
  1. PROGRAF [Suspect]
     Indication: LIVER TRANSPLANT
  2. NORVASC (AMLODRIPINE BESILATE) [Concomitant]

REACTIONS (2)
  - BLOOD CREATININE INCREASED [None]
  - LARGE INTESTINAL ULCER HAEMORRHAGE [None]
